FAERS Safety Report 5371103-2 (Version None)
Quarter: 2007Q2

REPORT INFORMATION
  Report Type: 
  Country: None (occurrence: None)
  Receive Date: 20070622
  Receipt Date: 20070613
  Transmission Date: 20071010
  Serious: Yes (Other)
  Sender: FDA-Public Use
  Company Number: L07-FRA-02582-01

PATIENT

DRUGS (1)
  1. CARBAMAZEPINE [Suspect]

REACTIONS (2)
  - DIABETES MELLITUS INSULIN-DEPENDENT [None]
  - DRUG RASH WITH EOSINOPHILIA AND SYSTEMIC SYMPTOMS [None]
